FAERS Safety Report 9132450 (Version 1)
Quarter: 2013Q1

REPORT INFORMATION
  Report Type: Spontaneous
  Country: US (occurrence: US)
  Receive Date: 20130301
  Receipt Date: 20130301
  Transmission Date: 20140127
  Serious: Yes (Other)
  Sender: FDA-Public Use
  Company Number: US-GLAXOSMITHKLINE-A1013451A

PATIENT
  Age: 56 Year
  Sex: Female

DRUGS (6)
  1. ADVAIR [Suspect]
     Indication: ASTHMA
     Dosage: 1PUFF TWICE PER DAY
     Route: 055
     Dates: start: 2002
  2. HYDROCHLOROTHIAZIDE [Concomitant]
  3. PRO-AIR [Concomitant]
  4. SINGULAIR [Concomitant]
  5. ESTRADIOL [Concomitant]
  6. MEDROXYPROGESTERONE [Concomitant]

REACTIONS (4)
  - Glaucoma [Not Recovered/Not Resolved]
  - Cataract [Not Recovered/Not Resolved]
  - Intraocular pressure increased [Not Recovered/Not Resolved]
  - Chest discomfort [Recovered/Resolved]
